FAERS Safety Report 24276562 (Version 10)
Quarter: 2025Q1

REPORT INFORMATION
  Report Type: Spontaneous
  Country: US (occurrence: US)
  Receive Date: 20240903
  Receipt Date: 20250314
  Transmission Date: 20250408
  Serious: Yes (Other)
  Sender: BRISTOL-MYERS SQUIBB COMPANY
  Company Number: US-BRISTOL-MYERS SQUIBB COMPANY-2024-139335

PATIENT
  Age: 84 Year
  Sex: Female

DRUGS (6)
  1. LENALIDOMIDE [Suspect]
     Active Substance: LENALIDOMIDE
     Indication: Plasma cell myeloma
     Route: 048
  2. LENALIDOMIDE [Suspect]
     Active Substance: LENALIDOMIDE
     Indication: Chemotherapy
     Route: 048
  3. LENALIDOMIDE [Suspect]
     Active Substance: LENALIDOMIDE
     Route: 048
  4. LENALIDOMIDE [Suspect]
     Active Substance: LENALIDOMIDE
     Route: 048
  5. LENALIDOMIDE [Suspect]
     Active Substance: LENALIDOMIDE
     Route: 048
  6. DEXAMETHASONE [Concomitant]
     Active Substance: DEXAMETHASONE
     Indication: Product used for unknown indication

REACTIONS (15)
  - Muscular weakness [Not Recovered/Not Resolved]
  - Fatigue [Not Recovered/Not Resolved]
  - Laziness [Not Recovered/Not Resolved]
  - White blood cell disorder [Not Recovered/Not Resolved]
  - Full blood count decreased [Recovering/Resolving]
  - White blood cell count decreased [Recovered/Resolved]
  - Nasopharyngitis [Recovering/Resolving]
  - Peripheral swelling [Recovering/Resolving]
  - Vein disorder [Recovering/Resolving]
  - Hypertension [Recovering/Resolving]
  - Blood pressure fluctuation [Not Recovered/Not Resolved]
  - Macular degeneration [Not Recovered/Not Resolved]
  - Arthralgia [Not Recovered/Not Resolved]
  - Decreased appetite [Not Recovered/Not Resolved]
  - Constipation [Recovering/Resolving]

NARRATIVE: CASE EVENT DATE: 20241001
